FAERS Safety Report 9848781 (Version 4)
Quarter: 2014Q4

REPORT INFORMATION
  Report Type: Spontaneous
  Country: US (occurrence: US)
  Receive Date: 20140128
  Receipt Date: 20141003
  Transmission Date: 20150529
  Serious: Yes (Death, Hospitalization, Other)
  Sender: FDA-Public Use
  Company Number: US-009507513-1401USA011887

PATIENT
  Sex: Male
  Weight: 136.5 kg

DRUGS (2)
  1. JANUVIA [Suspect]
     Active Substance: SITAGLIPTIN PHOSPHATE
     Indication: TYPE 1 DIABETES MELLITUS
     Dosage: 100 MG, QD
     Route: 048
     Dates: start: 20091009, end: 20101001
  2. BYETTA [Suspect]
     Active Substance: EXENATIDE
     Indication: TYPE 1 DIABETES MELLITUS
     Dosage: 5-10 MCG, BID
     Dates: start: 20060927, end: 20090609

REACTIONS (13)
  - Gastrectomy [Unknown]
  - Choledochoenterostomy [Unknown]
  - Hip arthroplasty [Unknown]
  - Gastric bypass [Unknown]
  - Cholelithiasis [Unknown]
  - Off label use [Unknown]
  - Failure to thrive [Unknown]
  - Pancreatitis [Unknown]
  - Blood cholesterol increased [Unknown]
  - Cholecystectomy [Unknown]
  - Pancreatic carcinoma metastatic [Fatal]
  - Pneumonia [Unknown]
  - Perforation bile duct [Unknown]

NARRATIVE: CASE EVENT DATE: 20091009
